FAERS Safety Report 20063595 (Version 1)
Quarter: 2021Q4

REPORT INFORMATION
  Report Type: Report from Study
  Country: MX (occurrence: MX)
  Receive Date: 20211112
  Receipt Date: 20211112
  Transmission Date: 20220303
  Serious: Yes (Death)
  Sender: FDA-Public Use
  Company Number: MX-NOVARTISPH-NVSC2021MX258935

PATIENT
  Sex: Male
  Weight: 50 kg

DRUGS (1)
  1. ELTROMBOPAG OLAMINE [Suspect]
     Active Substance: ELTROMBOPAG OLAMINE
     Indication: Thrombocytopenic purpura
     Dosage: 1 DF, QD
     Route: 048
     Dates: start: 202105, end: 202108

REACTIONS (2)
  - Immune-mediated pancreatitis [Fatal]
  - Hepatic cirrhosis [Fatal]
